FAERS Safety Report 20431210 (Version 1)
Quarter: 2022Q1

REPORT INFORMATION
  Report Type: Spontaneous
  Country: US (occurrence: US)
  Receive Date: 20220204
  Receipt Date: 20220204
  Transmission Date: 20220423
  Serious: No
  Sender: FDA-Public Use
  Company Number: US-PERRIGO-21US004134

PATIENT
  Age: 77 Year
  Sex: Female
  Weight: 39.909 kg

DRUGS (13)
  1. TRETINOIN [Suspect]
     Active Substance: TRETINOIN
     Indication: Cyst
     Dosage: SMALL AMOUNT, NIGHTLY
     Route: 061
     Dates: start: 20210316, end: 20210317
  2. SOAP [Suspect]
     Active Substance: SOAP
     Indication: Cyst
     Dosage: SMALL AMOUNT, NIGHTLY
     Route: 061
     Dates: start: 20210316, end: 20210317
  3. LEVOTHYROXINE [Concomitant]
     Active Substance: LEVOTHYROXINE
     Indication: Hypothyroidism
     Dosage: UNK
     Route: 065
  4. OMEPRAZOLE [Concomitant]
     Active Substance: OMEPRAZOLE
     Indication: Dyspepsia
     Dosage: 20 MG
     Route: 065
  5. VITAMIN D3 [Concomitant]
     Active Substance: CHOLECALCIFEROL
     Indication: Supplementation therapy
     Dosage: 2000
     Route: 065
  6. ALLEGRA [Concomitant]
     Active Substance: FEXOFENADINE HYDROCHLORIDE
     Indication: Hypersensitivity
     Dosage: UNK
     Route: 065
  7. FLONASE                            /00908302/ [Concomitant]
     Indication: Hypersensitivity
     Dosage: UNK
     Route: 065
  8. SALINE                             /00075401/ [Concomitant]
     Indication: Hypersensitivity
     Dosage: UNK
     Route: 065
  9. VALIUM [Concomitant]
     Active Substance: DIAZEPAM
     Indication: Insomnia
     Dosage: UNK
     Route: 065
  10. GAS-X [Concomitant]
     Active Substance: DIMETHICONE
     Indication: Flatulence
     Dosage: UNK
     Route: 065
  11. TUMS                               /00193601/ [Concomitant]
     Indication: Dyspepsia
     Dosage: UNK
     Route: 065
  12. PROBIOTIC                          /06395501/ [Concomitant]
     Indication: Supplementation therapy
     Dosage: UNK
     Route: 065
  13. METAMUCIL                          /00091301/ [Concomitant]
     Indication: Supplementation therapy
     Dosage: UNK
     Route: 065

REACTIONS (3)
  - Headache [Recovered/Resolved]
  - Off label use [Recovered/Resolved]
  - Wrong technique in product usage process [Recovered/Resolved]

NARRATIVE: CASE EVENT DATE: 20210316
